FAERS Safety Report 9820180 (Version 1)
Quarter: 2013Q4

REPORT INFORMATION
  Report Type: Spontaneous
  Country: US (occurrence: None)
  Receive Date: 20131223
  Receipt Date: 20131223
  Transmission Date: 20140711
  Serious: No
  Sender: FDA-Public Use
  Company Number: 220859

PATIENT
  Age: 69 Year
  Sex: Female

DRUGS (1)
  1. PICATO GEL [Suspect]
     Indication: PRECANCEROUS SKIN LESION
     Route: 061
     Dates: start: 20130301

REACTIONS (5)
  - Application site irritation [None]
  - Application site erythema [None]
  - Drug administered at inappropriate site [None]
  - Off label use [None]
  - Wrong technique in drug usage process [None]
